FAERS Safety Report 21895210 (Version 1)
Quarter: 2023Q1

REPORT INFORMATION
  Report Type: Spontaneous
  Country: US (occurrence: US)
  Receive Date: 20230123
  Receipt Date: 20230123
  Transmission Date: 20230418
  Serious: Yes (Other)
  Sender: FDA-Public Use
  Company Number: US-BEH-2023154433

PATIENT
  Sex: Female

DRUGS (16)
  1. HIZENTRA [Suspect]
     Active Substance: HUMAN IMMUNOGLOBULIN G
     Indication: Asthma
     Dosage: 20 GRAM, QW
     Route: 058
  2. ORENCIA [Concomitant]
     Active Substance: ABATACEPT
  3. PREDNISONE [Concomitant]
     Active Substance: PREDNISONE
  4. RITUXAN [Concomitant]
     Active Substance: RITUXIMAB
  5. AZITHROMYCIN [Concomitant]
     Active Substance: AZITHROMYCIN
  6. BIOTIN [Concomitant]
     Active Substance: BIOTIN
  7. CLINDAMYCIN HYDROCHLORIDE [Concomitant]
     Active Substance: CLINDAMYCIN HYDROCHLORIDE
  8. GARLIC (DEODORIZED) [Concomitant]
  9. METOPROLOL TARTRATE [Concomitant]
     Active Substance: METOPROLOL TARTRATE
  10. VITAMINS [Concomitant]
     Active Substance: VITAMINS
  11. ROSUVASTATIN CALCIUM [Concomitant]
     Active Substance: ROSUVASTATIN CALCIUM
  12. SIROLIMUS [Concomitant]
     Active Substance: SIROLIMUS
  13. URSODIOL [Concomitant]
     Active Substance: URSODIOL
  14. VEMLIDY [Concomitant]
     Active Substance: TENOFOVIR ALAFENAMIDE FUMARATE
  15. WELLBUTRIN SR [Concomitant]
     Active Substance: BUPROPION HYDROCHLORIDE
  16. ZOLOFT [Concomitant]
     Active Substance: SERTRALINE HYDROCHLORIDE

REACTIONS (6)
  - Cytomegalovirus infection [Recovered/Resolved]
  - Infusion site swelling [Recovered/Resolved]
  - Infusion site erythema [Recovered/Resolved]
  - Headache [Recovered/Resolved]
  - No adverse event [Unknown]
  - Off label use [Unknown]
